FAERS Safety Report 14539766 (Version 1)
Quarter: 2018Q1

REPORT INFORMATION
  Report Type: Report from Study
  Country: AR (occurrence: AR)
  Receive Date: 20180216
  Receipt Date: 20180216
  Transmission Date: 20180509
  Serious: Yes (Other)
  Sender: FDA-Public Use
  Company Number: AR-BAYER-2017-180227

PATIENT
  Age: 66 Year
  Sex: Female

DRUGS (3)
  1. LEVOTHYROXINE. [Concomitant]
     Active Substance: LEVOTHYROXINE
  2. NEXAVAR [Suspect]
     Active Substance: SORAFENIB
     Indication: THYROID CANCER
     Dosage: 600MG
     Route: 048
     Dates: start: 20180102
  3. NEXAVAR [Suspect]
     Active Substance: SORAFENIB
     Indication: THYROID CANCER
     Dosage: 400 MG, UNK
     Route: 048
     Dates: start: 201703, end: 20171013

REACTIONS (25)
  - Immunodeficiency [None]
  - Skin papilloma [None]
  - Vomiting [Recovering/Resolving]
  - Gastritis [Not Recovered/Not Resolved]
  - Diarrhoea [Recovering/Resolving]
  - Gastrooesophageal reflux disease [Recovering/Resolving]
  - Gastrooesophageal reflux disease [Recovered/Resolved]
  - Dry skin [None]
  - Fatigue [None]
  - Alopecia [Recovering/Resolving]
  - Burning sensation [None]
  - Palmar-plantar erythrodysaesthesia syndrome [None]
  - Gastrointestinal disorder [Not Recovered/Not Resolved]
  - Irritable bowel syndrome [None]
  - Myalgia [None]
  - Gastric disorder [Recovering/Resolving]
  - Tongue discomfort [Recovered/Resolved]
  - Dyspepsia [None]
  - Product preparation error [None]
  - Feeling abnormal [Recovering/Resolving]
  - Tongue blistering [Recovered/Resolved]
  - Skin exfoliation [Recovering/Resolving]
  - Dyspepsia [Recovered/Resolved]
  - Infection [None]
  - Hyperkeratosis [None]

NARRATIVE: CASE EVENT DATE: 201703
